FAERS Safety Report 10489587 (Version 2)
Quarter: 2014Q4

REPORT INFORMATION
  Report Type: Spontaneous
  Country: US (occurrence: US)
  Receive Date: 20141002
  Receipt Date: 20141029
  Transmission Date: 20150528
  Serious: Yes (Other)
  Sender: FDA-Public Use
  Company Number: US-SHIRE-US201406493

PATIENT
  Age: 8 Year
  Sex: Female
  Weight: 48.98 kg

DRUGS (3)
  1. VYVANSE [Suspect]
     Active Substance: LISDEXAMFETAMINE DIMESYLATE
     Indication: ATTENTION DEFICIT/HYPERACTIVITY DISORDER
     Dosage: 30 MG, 1X/DAY:QD
     Route: 048
     Dates: start: 20140530, end: 20140916
  2. VYVANSE [Suspect]
     Active Substance: LISDEXAMFETAMINE DIMESYLATE
     Dosage: UNK UNK, UNKNOWN
     Route: 048
     Dates: start: 201308, end: 201309
  3. VYVANSE [Suspect]
     Active Substance: LISDEXAMFETAMINE DIMESYLATE
     Dosage: 40 MG, UNKNOWN
     Route: 048
     Dates: start: 201311, end: 20140414

REACTIONS (2)
  - Skin exfoliation [Recovered/Resolved]
  - Raynaud^s phenomenon [Recovered/Resolved]

NARRATIVE: CASE EVENT DATE: 201407
